FAERS Safety Report 7596587-0 (Version None)
Quarter: 2011Q3

REPORT INFORMATION
  Report Type: 
  Country: None (occurrence: None)
  Receive Date: 20110708
  Receipt Date: 20110624
  Transmission Date: 20111222
  Serious: Yes (Hospitalization, Disabling)
  Sender: FDA-Public Use
  Company Number: DE-RANBAXY-2011RR-45854

PATIENT
  Sex: Male

DRUGS (3)
  1. CEFUROXIME RATIOPHARM 1500MG [Concomitant]
     Route: 042
  2. CEFUROXIME RATIOPHARM 1500MG [Concomitant]
     Dosage: UNK
     Route: 048
  3. CEFUROXIME [Suspect]
     Indication: HAEMOPHILUS INFECTION
     Dosage: 500 MG, BID
     Route: 048
     Dates: start: 20110601

REACTIONS (2)
  - CIRCULATORY COLLAPSE [None]
  - VOMITING [None]
